FAERS Safety Report 5107574-6 (Version None)
Quarter: 2006Q3

REPORT INFORMATION
  Report Type: 
  Country: None (occurrence: None)
  Receive Date: 20060913
  Receipt Date: 20060913
  Transmission Date: 20061208
  Serious: Yes (Hospitalization)
  Sender: FDA-Public Use
  Company Number: None

PATIENT
  Sex: Male

DRUGS (6)
  1. LANTUS [Suspect]
     Indication: DIABETES MELLITUS
     Dosage: 14 UNITS  BID SQ
     Route: 058
  2. ASPART  100 UNITS/ML [Suspect]
     Dosage: 2 UNITS FOR 15 GRAMS TID SQ
     Route: 058
  3. ATENOLOL [Concomitant]
  4. SIMVASTATIN [Concomitant]
  5. AMITRIPTYLINE HCL [Concomitant]
  6. LISINOPRIL [Concomitant]

REACTIONS (3)
  - FALL [None]
  - FOOT FRACTURE [None]
  - HYPOGLYCAEMIA [None]
